FAERS Safety Report 21702923 (Version 2)
Quarter: 2022Q4

REPORT INFORMATION
  Report Type: Report from Study
  Country: US (occurrence: US)
  Receive Date: 20221209
  Receipt Date: 20221214
  Transmission Date: 20230113
  Serious: Yes (Hospitalization)
  Sender: FDA-Public Use
  Company Number: US-ABBVIE-4229251

PATIENT
  Sex: Male

DRUGS (7)
  1. VENCLEXTA [Suspect]
     Active Substance: VENETOCLAX
     Indication: Acute myeloid leukaemia
     Dosage: FOUR TABLETS BY MOUTH DAILY THEREAFTER?TAKE ONE TABLET BY MOUTH ON DAY ONE, TWO TABLETS ON DAY TW...
     Route: 048
     Dates: start: 20221122, end: 20221122
  2. VENCLEXTA [Suspect]
     Active Substance: VENETOCLAX
     Indication: Acute myeloid leukaemia
     Dosage: DO NOT CRUSH OR CHEW TABLETS
     Route: 048
  3. VENCLEXTA [Suspect]
     Active Substance: VENETOCLAX
     Indication: Acute myeloid leukaemia
     Dosage: ONE TABLET BY MOUTH ON DAY ONE
     Route: 048
  4. VENCLEXTA [Suspect]
     Active Substance: VENETOCLAX
     Indication: Acute myeloid leukaemia
     Dosage: START DATE NOV 2022
     Route: 048
  5. VENCLEXTA [Suspect]
     Active Substance: VENETOCLAX
     Indication: Acute myeloid leukaemia
     Dosage: TWO TABLETS ON DAY TWO
     Route: 048
     Dates: start: 20221123
  6. TRAMADOL [Concomitant]
     Active Substance: TRAMADOL
     Indication: Pain
     Dates: start: 20221122
  7. OXYCODONE [Concomitant]
     Active Substance: OXYCODONE
     Indication: Pain

REACTIONS (5)
  - Throat tightness [Unknown]
  - Platelet count decreased [Unknown]
  - Haemoptysis [Unknown]
  - Choking [Unknown]
  - Foaming at mouth [Unknown]
